FAERS Safety Report 9040226 (Version 1)
Quarter: 2013Q1

REPORT INFORMATION
  Report Type: Report from Study
  Country: US (occurrence: US)
  Receive Date: 20130129
  Receipt Date: 20130129
  Transmission Date: 20140127
  Serious: No
  Sender: FDA-Public Use
  Company Number: US-ABBOTT-11P-163-0874986-00

PATIENT
  Sex: Female
  Weight: 85.81 kg

DRUGS (5)
  1. HUMIRA 40 MG/0.8 ML PEN [Suspect]
     Indication: PSORIASIS
     Route: 058
     Dates: start: 201101, end: 201104
  2. HUMIRA 40 MG/0.8 ML PEN [Suspect]
     Route: 058
     Dates: start: 201101, end: 201101
  3. LISINOPRIL [Concomitant]
     Indication: BLOOD PRESSURE
  4. SYNTHROID [Concomitant]
     Indication: THYROID DISORDER
  5. SIMVASTATIN [Concomitant]
     Indication: BLOOD CHOLESTEROL

REACTIONS (2)
  - Psoriasis [Not Recovered/Not Resolved]
  - Psoriasis [Not Recovered/Not Resolved]
